FAERS Safety Report 5776450-8 (Version None)
Quarter: 2008Q2

REPORT INFORMATION
  Report Type: 
  Country: None (occurrence: None)
  Receive Date: 20080617
  Receipt Date: 20080617
  Transmission Date: 20081010
  Serious: No
  Sender: FDA-Public Use
  Company Number: None

PATIENT
  Sex: Male
  Weight: 58.9676 kg

DRUGS (1)
  1. DIGITEK, 0.125MG, MYLAN BERTEK [Suspect]
     Indication: CARDIAC FAILURE CONGESTIVE
     Dosage: 0.125MG EVERY OTHER DAY ORAL
     Route: 048
     Dates: start: 19960101, end: 20080101

REACTIONS (4)
  - ABDOMINAL PAIN [None]
  - DIARRHOEA [None]
  - PHARMACEUTICAL PRODUCT COMPLAINT [None]
  - WEIGHT DECREASED [None]
